FAERS Safety Report 21967661 (Version 1)
Quarter: 2023Q1

REPORT INFORMATION
  Report Type: Spontaneous
  Country: NO (occurrence: NO)
  Receive Date: 20230208
  Receipt Date: 20230208
  Transmission Date: 20230418
  Serious: Yes (Hospitalization)
  Sender: FDA-Public Use
  Company Number: None

PATIENT

DRUGS (1)
  1. LAMICTAL [Suspect]
     Active Substance: LAMOTRIGINE
     Indication: Bipolar II disorder
     Dosage: 25 MG
     Route: 048
     Dates: start: 20221129, end: 20221213

REACTIONS (12)
  - Dyspnoea [Unknown]
  - Oropharyngeal pain [Unknown]
  - Photophobia [Unknown]
  - Headache [Unknown]
  - Dysphemia [Unknown]
  - Pyrexia [Unknown]
  - Pruritus [Unknown]
  - Paraesthesia [Unknown]
  - Pain in extremity [Unknown]
  - Headache [Unknown]
  - Headache [Unknown]
  - Erythema [Unknown]

NARRATIVE: CASE EVENT DATE: 20221212
